FAERS Safety Report 9030825 (Version 1)
Quarter: 2013Q1

REPORT INFORMATION
  Report Type: Spontaneous
  Country: CH (occurrence: CH)
  Receive Date: 20130123
  Receipt Date: 20130123
  Transmission Date: 20140127
  Serious: Yes (Death)
  Sender: FDA-Public Use
  Company Number: CH-ROCHE-1180464

PATIENT
  Sex: Female

DRUGS (14)
  1. HERCEPTIN [Suspect]
     Indication: INFLAMMATORY CARCINOMA OF THE BREAST
     Route: 042
     Dates: start: 20070913, end: 20071115
  2. HERCEPTIN [Suspect]
     Route: 042
     Dates: start: 20080207, end: 20080320
  3. HERCEPTIN [Suspect]
     Route: 042
     Dates: start: 20081218, end: 20090528
  4. HERCEPTIN [Suspect]
     Route: 042
     Dates: start: 200910
  5. HERCEPTIN [Suspect]
     Route: 042
     Dates: start: 20110720
  6. HERCEPTIN [Suspect]
     Route: 042
     Dates: start: 201201
  7. NAVELBINE [Concomitant]
     Route: 065
     Dates: start: 20070913, end: 20071115
  8. NAVELBINE [Concomitant]
     Route: 065
     Dates: start: 20080207, end: 20080320
  9. CAELYX [Concomitant]
     Route: 065
     Dates: start: 20081218, end: 20090528
  10. TAXOL [Concomitant]
  11. GEMZAR [Concomitant]
     Route: 065
     Dates: start: 200910
  12. TYVERB [Concomitant]
  13. XELODA [Concomitant]
     Route: 065
  14. CARBOPLATINUM [Concomitant]
     Route: 065
     Dates: start: 20110720

REACTIONS (1)
  - Disease progression [Fatal]
